FAERS Safety Report 7436185-2 (Version None)
Quarter: 2011Q2

REPORT INFORMATION
  Report Type: 
  Country: None (occurrence: None)
  Receive Date: 20110425
  Receipt Date: 20110420
  Transmission Date: 20111010
  Serious: Yes (Hospitalization)
  Sender: FDA-Public Use
  Company Number: DE-MERCK-1104DEU00076

PATIENT
  Age: 53 Year
  Sex: Female

DRUGS (1)
  1. TRUSOPT [Suspect]
     Route: 047

REACTIONS (3)
  - VOMITING [None]
  - NAUSEA [None]
  - TINNITUS [None]
